FAERS Safety Report 5369165-1 (Version None)
Quarter: 2007Q2

REPORT INFORMATION
  Report Type: 
  Country: None (occurrence: None)
  Receive Date: 20070625
  Receipt Date: 20070420
  Transmission Date: 20071010
  Serious: No
  Sender: FDA-Public Use
  Company Number: US-ASTRAZENECA-2007UW02925

PATIENT
  Age: 62 Year
  Sex: Female
  Weight: 86.2 kg

DRUGS (8)
  1. CRESTOR [Suspect]
     Indication: BLOOD CHOLESTEROL INCREASED
     Route: 048
  2. FISH OIL [Concomitant]
  3. MULTIVITAMIN [Concomitant]
     Route: 048
  4. ASPIRIN [Concomitant]
     Route: 048
  5. CALCIUM CHLORIDE [Concomitant]
  6. GARLIC [Concomitant]
  7. GLUCOSAMINE CHONDROITIN [Concomitant]
     Dosage: 100 MG/ 200 MG QD
  8. VYTORIN [Concomitant]
     Dosage: 10 MG/ 20 MG HS

REACTIONS (5)
  - ARTERIOSCLEROSIS [None]
  - CHEST DISCOMFORT [None]
  - CORONARY ARTERY DISEASE [None]
  - FEELING ABNORMAL [None]
  - HYPOTHYROIDISM [None]
